FAERS Safety Report 10379429 (Version 3)
Quarter: 2014Q3

REPORT INFORMATION
  Report Type: Spontaneous
  Country: US (occurrence: US)
  Receive Date: 20140812
  Receipt Date: 20140813
  Transmission Date: 20150326
  Serious: Yes (Death)
  Sender: FDA-Public Use
  Company Number: US-B.I. PHARMACEUTICALS,INC./RIDGEFIELD-2014-BI-36767BP

PATIENT
  Sex: Male
  Weight: 72.57 kg

DRUGS (4)
  1. INSULIN R [Concomitant]
     Indication: TYPE 2 DIABETES MELLITUS
     Route: 065
  2. ZANTAC [Suspect]
     Active Substance: RANITIDINE HYDROCHLORIDE
     Indication: PRODUCT USED FOR UNKNOWN INDICATION
     Dosage: 150 MG
     Route: 048
  3. RANEXA [Concomitant]
     Active Substance: RANOLAZINE
     Dosage: 2000 U
     Route: 065
  4. NPH INSULIN [Concomitant]
     Active Substance: INSULIN BEEF
     Indication: TYPE 2 DIABETES MELLITUS
     Route: 065

REACTIONS (1)
  - Death [Fatal]
